FAERS Safety Report 24959761 (Version 1)
Quarter: 2025Q1

REPORT INFORMATION
  Report Type: Spontaneous
  Country: US (occurrence: None)
  Receive Date: 20250211
  Receipt Date: 20250211
  Transmission Date: 20250409
  Serious: Yes (Hospitalization)
  Sender: FDA-CTU
  Company Number: None

PATIENT
  Age: 17 Year
  Sex: Female

DRUGS (1)
  1. PROMACTA [Suspect]
     Active Substance: ELTROMBOPAG OLAMINE
     Indication: Iron deficiency anaemia
     Dosage: FREQUENCY : DAILY;?

REACTIONS (6)
  - Abnormal dreams [None]
  - Autoscopy [None]
  - Headache [None]
  - Vomiting [None]
  - Nausea [None]
  - Dehydration [None]
